FAERS Safety Report 24316131 (Version 1)
Quarter: 2024Q3

REPORT INFORMATION
  Report Type: Spontaneous
  Country: AU (occurrence: AU)
  Receive Date: 20240913
  Receipt Date: 20240913
  Transmission Date: 20241017
  Serious: Yes (Hospitalization, Other)
  Sender: RANBAXY
  Company Number: AU-SUN PHARMACEUTICAL INDUSTRIES LTD-2024R1-466168

PATIENT
  Age: 78 Year
  Sex: Female
  Weight: 78.3 kg

DRUGS (22)
  1. DOXORUBICIN [Suspect]
     Active Substance: DOXORUBICIN
     Indication: Diffuse large B-cell lymphoma
     Dosage: UNK (93.5 MILLIGRAM; INTERVAL: 3 WEEK)
     Route: 042
     Dates: start: 20240510
  2. CYCLOPHOSPHAMIDE [Suspect]
     Active Substance: CYCLOPHOSPHAMIDE
     Indication: Diffuse large B-cell lymphoma
     Dosage: UNK (1402.5 MILLIGRAM; INTERVAL: 3 WEEK)
     Route: 042
     Dates: start: 20240510
  3. EPCORITAMAB [Suspect]
     Active Substance: EPCORITAMAB
     Indication: Diffuse large B-cell lymphoma
     Dosage: UNK (0.16 MILLIGRAM)
     Route: 058
     Dates: start: 20240510, end: 20240510
  4. EPCORITAMAB [Suspect]
     Active Substance: EPCORITAMAB
     Dosage: UNK (0.8 MILLIGRAM)
     Route: 058
     Dates: start: 20240517, end: 20240517
  5. EPCORITAMAB [Suspect]
     Active Substance: EPCORITAMAB
     Dosage: UNK (48 MILLIGRAM)
     Route: 058
     Dates: start: 20240524, end: 20240524
  6. EPCORITAMAB [Suspect]
     Active Substance: EPCORITAMAB
     Dosage: UNK (48 MILLIGRAM; INTERVAL: 1 WEEK)
     Route: 058
     Dates: start: 20240531
  7. PREDNISONE [Suspect]
     Active Substance: PREDNISONE
     Indication: Diffuse large B-cell lymphoma
     Dosage: UNK (100 MILLIGRAM; INTERVAL: 1 DAY)
     Route: 048
     Dates: start: 20240510
  8. RITUXIMAB [Suspect]
     Active Substance: RITUXIMAB
     Indication: Diffuse large B-cell lymphoma
     Dosage: UNK (701.25 MILLIGRAM; INTERVAL: 3 WEEK)
     Route: 042
     Dates: start: 20240510
  9. VINCRISTINE [Suspect]
     Active Substance: VINCRISTINE
     Indication: Diffuse large B-cell lymphoma
     Dosage: UNK (2 MG,INTERVAL: 3 WEEK)
     Route: 042
     Dates: start: 20240510
  10. BACTRIM [Concomitant]
     Active Substance: SULFAMETHOXAZOLE\TRIMETHOPRIM
     Indication: Antibiotic prophylaxis
     Dosage: UNK
     Route: 048
     Dates: start: 20240507
  11. CELEBREX [Concomitant]
     Active Substance: CELECOXIB
     Indication: Prophylaxis
     Dosage: UNK (100 MG)
     Route: 048
     Dates: start: 20240510
  12. MOVICOL [Concomitant]
     Active Substance: POLYETHYLENE GLYCOL 3350\POTASSIUM CHLORIDE\SODIUM BICARBONATE\SODIUM CHLORIDE
     Indication: Constipation
     Dosage: UNK
     Route: 048
     Dates: start: 20240503
  13. ALLOPURINOL [Concomitant]
     Active Substance: ALLOPURINOL
     Indication: Prophylaxis
     Dosage: 300 MILLIGRAM, DAILY
     Route: 048
     Dates: start: 20240504
  14. BISOPROLOL FUMARATE [Concomitant]
     Active Substance: BISOPROLOL FUMARATE
     Indication: Hypertension
     Dosage: 2.5 MILLIGRAM, DAILY
     Route: 048
     Dates: start: 20240503
  15. LORATADINE [Concomitant]
     Active Substance: LORATADINE
     Indication: Prophylaxis
     Dosage: UNK (10 MILLIGRAM; INTERVAL: 3 WEEK)
     Route: 048
     Dates: start: 20240510
  16. PALONOSETRON [Concomitant]
     Active Substance: PALONOSETRON
     Indication: Prophylaxis of nausea and vomiting
     Dosage: UNK (250 MILLIGRAM; INTERVAL: 3 WEEK)
     Route: 048
     Dates: start: 20240510
  17. PANTOPRAZOLE SODIUM [Concomitant]
     Active Substance: PANTOPRAZOLE SODIUM
     Indication: Gastrooesophageal reflux disease
     Dosage: UNK (40 MILLIGRAM; INTERVAL: 1 DAY)
     Route: 048
     Dates: start: 20240504
  18. ACETAMINOPHEN [Concomitant]
     Active Substance: ACETAMINOPHEN
     Indication: Antipyresis
     Dosage: UNK (1000 MILLIGRAM; INTERVAL: 3 WEEK)
     Route: 048
     Dates: start: 20240510
  19. PREDNISOLONE [Concomitant]
     Active Substance: PREDNISOLONE
     Indication: Prophylaxis
     Dosage: 100 MILLIGRAM, DAILY
     Route: 048
     Dates: start: 20240524, end: 20240527
  20. PREGABALIN [Concomitant]
     Active Substance: PREGABALIN
     Indication: Neuralgia
     Dosage: 25 MILLIGRAM, DAILY
     Route: 048
     Dates: start: 20240531
  21. TAPENTADOL [Concomitant]
     Active Substance: TAPENTADOL
     Indication: Pain prophylaxis
     Dosage: UNK (50 MILLIGRAM)
     Route: 048
     Dates: start: 20240507
  22. TEMAZEPAM [Concomitant]
     Active Substance: TEMAZEPAM
     Indication: Insomnia
     Dosage: UNK
     Route: 048
     Dates: start: 20240506

REACTIONS (2)
  - Hypotension [Unknown]
  - Syncope [Unknown]

NARRATIVE: CASE EVENT DATE: 20240608
